FAERS Safety Report 4845268-2 (Version None)
Quarter: 2005Q4

REPORT INFORMATION
  Report Type: 
  Country: None (occurrence: None)
  Receive Date: 20051205
  Receipt Date: 20051123
  Transmission Date: 20060501
  Serious: Yes (Other)
  Sender: FDA-Public Use
  Company Number: DE-BRISTOL-MYERS SQUIBB COMPANY-13196712

PATIENT
  Age: 51 Year
  Sex: Male

DRUGS (6)
  1. ABILIFY [Suspect]
     Indication: BIPOLAR DISORDER
     Route: 048
     Dates: start: 20040722, end: 20040726
  2. CIPRALEX [Interacting]
     Indication: BIPOLAR DISORDER
     Dates: start: 20040630
  3. ERGENYL [Concomitant]
     Dates: start: 20040630
  4. SORTIS [Concomitant]
     Dates: start: 20040630
  5. BELOC-ZOK [Concomitant]
     Dates: start: 20040630
  6. EUGLUCON N [Concomitant]
     Dates: start: 20040630

REACTIONS (2)
  - AKATHISIA [None]
  - DRUG INTERACTION [None]
